FAERS Safety Report 18168183 (Version 4)
Quarter: 2020Q4

REPORT INFORMATION
  Report Type: Report from Study
  Country: US (occurrence: US)
  Receive Date: 20200818
  Receipt Date: 20201003
  Transmission Date: 20210113
  Serious: No
  Sender: FDA-Public Use
  Company Number: NVSC2020US227427

PATIENT
  Age: 58 Year
  Sex: Male

DRUGS (1)
  1. ENTRESTO [Suspect]
     Active Substance: SACUBITRIL\VALSARTAN
     Indication: PRODUCT USED FOR UNKNOWN INDICATION
     Dosage: UNK UNK, BID
     Route: 065
     Dates: start: 20200812

REACTIONS (7)
  - Weight decreased [Unknown]
  - Weight increased [Unknown]
  - Joint swelling [Unknown]
  - Feeling cold [Unknown]
  - Chest discomfort [Unknown]
  - Decreased activity [Unknown]
  - Arthritis [Unknown]

NARRATIVE: CASE EVENT DATE: 20200813
